FAERS Safety Report 5380892-2 (Version None)
Quarter: 2007Q2

REPORT INFORMATION
  Report Type: 
  Country: None (occurrence: None)
  Receive Date: 20070629
  Receipt Date: 20061211
  Transmission Date: 20071010
  Serious: Yes (Other)
  Sender: FDA-Public Use
  Company Number: US200612001801

PATIENT
  Age: 62 Year
  Sex: Female

DRUGS (2)
  1. HUMALOG [Suspect]
     Indication: DIABETES MELLITUS
     Dosage: 40 U, 2/D, SUBCUTANEOUS
     Route: 058
  2. HUMULIN N [Suspect]
     Indication: DIABETES MELLITUS
     Dosage: 70 U, 2/D, SUBCUTANEOUS
     Route: 058

REACTIONS (5)
  - ARTHRITIS [None]
  - CARDIAC FAILURE CONGESTIVE [None]
  - HEPATIC CIRRHOSIS [None]
  - HYPERTENSION [None]
  - NEUROPATHY PERIPHERAL [None]
